FAERS Safety Report 19713542 (Version 1)
Quarter: 2021Q3

REPORT INFORMATION
  Report Type: Spontaneous
  Country: US (occurrence: US)
  Receive Date: 20210817
  Receipt Date: 20210817
  Transmission Date: 20211014
  Serious: No
  Sender: FDA-Public Use
  Company Number: None

PATIENT
  Age: 38 Year
  Sex: Male

DRUGS (1)
  1. HUMIRA [Suspect]
     Active Substance: ADALIMUMAB
     Indication: CROHN^S DISEASE
     Dosage: OTHER FREQUENCY:OTHER;?
     Route: 058
     Dates: start: 202104

REACTIONS (2)
  - Therapy change [None]
  - Off label use [None]

NARRATIVE: CASE EVENT DATE: 20210817
